FAERS Safety Report 6717289-6 (Version None)
Quarter: 2010Q2

REPORT INFORMATION
  Report Type: 
  Country: None (occurrence: None)
  Receive Date: 20100510
  Receipt Date: 20100504
  Transmission Date: 20101027
  Serious: Yes (Other)
  Sender: FDA-Public Use
  Company Number: US-RB-008423-10

PATIENT
  Sex: Male

DRUGS (3)
  1. SUBOXONE [Suspect]
     Route: 060
     Dates: start: 20100503
  2. SUBOXONE [Suspect]
     Route: 060
     Dates: start: 20100401, end: 20100502
  3. METHADONE HCL [Suspect]
     Route: 065
     Dates: start: 20060101, end: 20100401

REACTIONS (5)
  - APPETITE DISORDER [None]
  - CONVULSION [None]
  - DRUG WITHDRAWAL SYNDROME [None]
  - HEADACHE [None]
  - INSOMNIA [None]
